FAERS Safety Report 6232510-9 (Version None)
Quarter: 2009Q2

REPORT INFORMATION
  Report Type: 
  Country: None (occurrence: None)
  Receive Date: 20090617
  Receipt Date: 20090602
  Transmission Date: 20091009
  Serious: Yes (Hospitalization, Other)
  Sender: FDA-Public Use
  Company Number: US-ASTRAZENECA-2009UW14876

PATIENT
  Age: 834 Month
  Sex: Female
  Weight: 98 kg

DRUGS (14)
  1. XYLOCAINE W/ EPINEPHRINE [Suspect]
     Indication: ANAESTHESIA
     Dates: start: 20090505, end: 20090505
  2. ULORIC [Suspect]
     Indication: GOUT
     Route: 048
     Dates: start: 20090312, end: 20090505
  3. COLCHICINE [Concomitant]
  4. ACETYLSALICYLIC ACID [Concomitant]
  5. NEXIUM [Concomitant]
     Route: 048
  6. SOTALOL HYDROCHLORIDE [Concomitant]
  7. FUROSEMIDE [Concomitant]
  8. VYTORIN [Concomitant]
  9. FOSAMAX [Concomitant]
  10. M.V.I. [Concomitant]
     Dosage: ONE A DAY
  11. ASCORBIC ACID [Concomitant]
  12. CALCIUM [Concomitant]
  13. VITAMIN D [Concomitant]
  14. FISH OIL [Concomitant]
     Dosage: ONE A DAY

REACTIONS (2)
  - CHEST PAIN [None]
  - MYOCARDIAL INFARCTION [None]
